FAERS Safety Report 6066039-8 (Version None)
Quarter: 2009Q1

REPORT INFORMATION
  Report Type: 
  Country: None (occurrence: None)
  Receive Date: 20090202
  Receipt Date: 20090121
  Transmission Date: 20090719
  Serious: Yes (Other)
  Sender: FDA-Public Use
  Company Number: 100#03#2009-00261

PATIENT
  Age: 64 Year
  Sex: Female

DRUGS (3)
  1. PAMIDRONAT (PAMIDRONIC ACID) [Suspect]
     Indication: DRUG USE FOR UNKNOWN INDICATION
     Dosage: 90 MG INTRAVENOUS
     Route: 042
     Dates: start: 20060901
  2. ARIMIDEX [Suspect]
     Indication: ENDOCRINE DISORDER
     Dates: start: 20080901
  3. ZOMETA [Suspect]
     Indication: DRUG USE FOR UNKNOWN INDICATION

REACTIONS (3)
  - IMPAIRED HEALING [None]
  - OSTEONECROSIS [None]
  - TOOTH EXTRACTION [None]
